FAERS Safety Report 8058313-0 (Version None)
Quarter: 2012Q1

REPORT INFORMATION
  Report Type: 
  Country: None (occurrence: None)
  Receive Date: 20120120
  Receipt Date: 20120118
  Transmission Date: 20120608
  Serious: No
  Sender: FDA-Public Use
  Company Number: US-B.I. PHARMACEUTICALS,INC./RIDGEFIELD-2012-BP-01032BP

PATIENT
  Sex: Female

DRUGS (3)
  1. MULTAQ [Concomitant]
     Indication: ATRIAL FIBRILLATION
     Route: 048
     Dates: start: 20100901, end: 20110928
  2. CARTIA XT [Concomitant]
     Indication: ATRIAL FIBRILLATION
     Dosage: 240 MG
     Route: 048
     Dates: start: 20070801
  3. PRADAXA [Suspect]
     Indication: ATRIAL FIBRILLATION
     Dosage: 300 MG
     Route: 048
     Dates: start: 20110428, end: 20111018

REACTIONS (5)
  - DYSPEPSIA [None]
  - CONSTIPATION [None]
  - NASAL CONGESTION [None]
  - NAUSEA [None]
  - COUGH [None]
